FAERS Safety Report 9133300 (Version 3)
Quarter: 2013Q2

REPORT INFORMATION
  Report Type: Spontaneous
  Country: ES (occurrence: ES)
  Receive Date: 20130301
  Receipt Date: 20130530
  Transmission Date: 20140414
  Serious: Yes (Hospitalization, Other)
  Sender: FDA-Public Use
  Company Number: ES-ABBOTT-13P-144-1054950-00

PATIENT
  Age: 61 Year
  Sex: Male
  Weight: 72 kg

DRUGS (3)
  1. HUMIRA [Suspect]
     Indication: PSORIASIS
     Dates: start: 20100224, end: 20130224
  2. PAROXETINE [Suspect]
     Indication: DEPRESSION
     Route: 048
     Dates: start: 2008, end: 201302
  3. METHOTREXATE [Concomitant]
     Indication: PSORIASIS
     Dates: start: 20100506, end: 201302

REACTIONS (9)
  - Encephalitis [Recovering/Resolving]
  - Motor dysfunction [Unknown]
  - Extrapyramidal disorder [Recovering/Resolving]
  - Headache [Unknown]
  - Confusional state [Unknown]
  - Hypotension [Unknown]
  - Pyrexia [Unknown]
  - Clumsiness [Unknown]
  - Aggression [Unknown]
